FAERS Safety Report 6898078-9 (Version None)
Quarter: 2010Q3

REPORT INFORMATION
  Report Type: 
  Country: None (occurrence: None)
  Receive Date: 20100729
  Receipt Date: 20100715
  Transmission Date: 20110219
  Serious: Yes (Hospitalization)
  Sender: FDA-Public Use
  Company Number: 7011264

PATIENT
  Age: 55 Year
  Sex: Female

DRUGS (1)
  1. REBIF [Suspect]
     Indication: PRODUCT USED FOR UNKNOWN INDICATION
     Dosage: 44 MCG, 3 IN 1 WK, SUBCUTANEOUS
     Route: 058
     Dates: start: 20100416

REACTIONS (8)
  - DYSPNOEA [None]
  - FATIGUE [None]
  - HEPATIC ENZYME INCREASED [None]
  - ILL-DEFINED DISORDER [None]
  - MUSCULOSKELETAL DISORDER [None]
  - NUCLEAR MAGNETIC RESONANCE IMAGING ABNORMAL [None]
  - OCCIPITAL NEURALGIA [None]
  - SENSATION OF HEAVINESS [None]
